FAERS Safety Report 5663908-5 (Version None)
Quarter: 2008Q1

REPORT INFORMATION
  Report Type: 
  Country: None (occurrence: None)
  Receive Date: 20080311
  Receipt Date: 20080303
  Transmission Date: 20080703
  Serious: Yes (Hospitalization, Other)
  Sender: FDA-Public Use
  Company Number: 2008SP004588

PATIENT
  Age: 65 Year
  Sex: Female

DRUGS (6)
  1. PEG-INTRON [Suspect]
     Indication: HEPATITIS C
     Dosage: 120 MCG;QW;SC
     Route: 058
     Dates: start: 20080129, end: 20080219
  2. CALCIUM CARBONATE [Concomitant]
  3. CALCITRIOL [Concomitant]
  4. LEVOTHYROXINE SODIUM [Concomitant]
  5. LOSARTAN POTASSIUM [Concomitant]
  6. METOPROLOL TARTRATE [Concomitant]

REACTIONS (3)
  - HYPOCALCAEMIA [None]
  - MUSCLE SPASMS [None]
  - PARAESTHESIA [None]
